FAERS Safety Report 9593750 (Version 1)
Quarter: 2013Q3

REPORT INFORMATION
  Report Type: Spontaneous
  Country: US (occurrence: None)
  Receive Date: 20130930
  Receipt Date: 20130930
  Transmission Date: 20140515
  Serious: No
  Sender: FDA-Public Use
  Company Number: 1000045643

PATIENT
  Age: 79 Year
  Sex: Male

DRUGS (2)
  1. LINZESS [Suspect]
     Dosage: 290 MCG (290 MCG, 1 IN 1 D), ORAL
     Route: 048
     Dates: start: 201305, end: 201305
  2. SIMVASTATIN (SIMVASTATIN) (SIMVASTATIN) [Concomitant]

REACTIONS (2)
  - Diarrhoea [None]
  - Constipation [None]
